FAERS Safety Report 25092854 (Version 1)
Quarter: 2025Q1

REPORT INFORMATION
  Report Type: Report from Study
  Country: US (occurrence: US)
  Receive Date: 20250319
  Receipt Date: 20250319
  Transmission Date: 20250409
  Serious: Yes (Other)
  Sender: BEIGENE
  Company Number: US-BEIGENE-BGN-2025-002220

PATIENT
  Age: 84 Year
  Weight: 69.297 kg

DRUGS (8)
  1. BRUKINSA [Suspect]
     Active Substance: ZANUBRUTINIB
     Indication: Chronic lymphocytic leukaemia
     Route: 048
  2. BRUKINSA [Suspect]
     Active Substance: ZANUBRUTINIB
  3. BRUKINSA [Suspect]
     Active Substance: ZANUBRUTINIB
  4. BRUKINSA [Suspect]
     Active Substance: ZANUBRUTINIB
     Route: 048
  5. BRUKINSA [Suspect]
     Active Substance: ZANUBRUTINIB
     Route: 048
  6. BRUKINSA [Suspect]
     Active Substance: ZANUBRUTINIB
  7. BRUKINSA [Suspect]
     Active Substance: ZANUBRUTINIB
  8. BRUKINSA [Suspect]
     Active Substance: ZANUBRUTINIB
     Route: 048

REACTIONS (3)
  - Rectal haemorrhage [Unknown]
  - Ulcer haemorrhage [Unknown]
  - Fatigue [Unknown]
